FAERS Safety Report 10044329 (Version 1)
Quarter: 2014Q1

REPORT INFORMATION
  Report Type: Spontaneous
  Country: TN (occurrence: TN)
  Receive Date: 20140328
  Receipt Date: 20140328
  Transmission Date: 20141002
  Serious: Yes (Hospitalization, Other)
  Sender: FDA-Public Use
  Company Number: TN-PFIZER INC-2014086853

PATIENT
  Age: 40 Year
  Sex: Male

DRUGS (1)
  1. TAHOR [Suspect]
     Dosage: 40 MG, UNK
     Route: 048

REACTIONS (2)
  - Rhabdomyolysis [Unknown]
  - Renal failure [Unknown]
